FAERS Safety Report 23956099 (Version 2)
Quarter: 2024Q3

REPORT INFORMATION
  Report Type: Spontaneous
  Country: CA (occurrence: CA)
  Receive Date: 20240610
  Receipt Date: 20240801
  Transmission Date: 20241017
  Serious: Yes (Death)
  Sender: PFIZER
  Company Number: CA-PFIZER INC-202400189321

PATIENT
  Age: 84 Year
  Sex: Female

DRUGS (1)
  1. RUXIENCE [Suspect]
     Active Substance: RITUXIMAB-PVVR
     Indication: Rheumatoid arthritis
     Dosage: 1 DF
     Route: 042
     Dates: start: 20230908

REACTIONS (1)
  - Death [Fatal]
